FAERS Safety Report 4375295-3 (Version None)
Quarter: 2004Q2

REPORT INFORMATION
  Report Type: 
  Country: None (occurrence: None)
  Receive Date: 20040609
  Receipt Date: 20040526
  Transmission Date: 20050107
  Serious: Yes (Other)
  Sender: FDA-Public Use
  Company Number: A-CH2004-06497

PATIENT
  Age: 70 Year
  Sex: Male

DRUGS (7)
  1. TRACLEER [Suspect]
     Indication: PULMONARY HYPERTENSION
     Dosage: SEE IMAGE
     Route: 048
     Dates: start: 20031001, end: 20030101
  2. TRACLEER [Suspect]
     Indication: PULMONARY HYPERTENSION
     Dosage: SEE IMAGE
     Route: 048
     Dates: start: 20030301, end: 20030701
  3. SINTROM [Concomitant]
  4. CORTICOSTEROIDS [Concomitant]
  5. CALCIUM CHANNEL BLOCKERS [Concomitant]
  6. AECA [Concomitant]
  7. OMEPRAZOLE [Concomitant]

REACTIONS (1)
  - HEPATITIS CHOLESTATIC [None]
